FAERS Safety Report 6408133-5 (Version None)
Quarter: 2009Q4

REPORT INFORMATION
  Report Type: 
  Country: None (occurrence: None)
  Receive Date: 20091021
  Receipt Date: 20091014
  Transmission Date: 20100525
  Serious: Yes (Other)
  Sender: FDA-Public Use
  Company Number: PT-BAYER-200935624GPV

PATIENT
  Age: 69 Year
  Sex: Male

DRUGS (1)
  1. LEVITRA [Suspect]
     Indication: ERECTILE DYSFUNCTION
     Route: 048
     Dates: start: 20070101, end: 20090701

REACTIONS (1)
  - VISUAL ACUITY REDUCED TRANSIENTLY [None]
